FAERS Safety Report 12540509 (Version 2)
Quarter: 2016Q4

REPORT INFORMATION
  Report Type: Spontaneous
  Country: US (occurrence: US)
  Receive Date: 20160708
  Receipt Date: 20161012
  Transmission Date: 20170207
  Serious: No
  Sender: FDA-Public Use
  Company Number: US-TEVA-649443USA

PATIENT
  Age: 30 Year
  Sex: Female

DRUGS (15)
  1. PREVACID [Concomitant]
     Active Substance: LANSOPRAZOLE
  2. HUMALOG [Concomitant]
     Active Substance: INSULIN LISPRO
  3. ZECUITY [Suspect]
     Active Substance: SUMATRIPTAN SUCCINATE
     Indication: MIGRAINE
     Route: 062
     Dates: start: 20160402
  4. VITAMIN D [Concomitant]
     Active Substance: CHOLECALCIFEROL
  5. TOPAMAX [Concomitant]
     Active Substance: TOPIRAMATE
  6. MULTIVITAMIN [Concomitant]
     Active Substance: VITAMINS
  7. WELLBUTRIN [Concomitant]
     Active Substance: BUPROPION HYDROCHLORIDE
  8. MAGNESIUM [Concomitant]
     Active Substance: MAGNESIUM
  9. SPIRIVA [Concomitant]
     Active Substance: TIOTROPIUM BROMIDE MONOHYDRATE
  10. SYMBICORT [Concomitant]
     Active Substance: BUDESONIDE\FORMOTEROL FUMARATE DIHYDRATE
  11. AMITRIPTYLINE [Concomitant]
     Active Substance: AMITRIPTYLINE
  12. SINGULAIR [Concomitant]
     Active Substance: MONTELUKAST SODIUM
  13. ALLEGRA [Concomitant]
     Active Substance: FEXOFENADINE HYDROCHLORIDE
  14. PATANOL [Concomitant]
     Active Substance: OLOPATADINE HYDROCHLORIDE
  15. FISH OIL [Concomitant]
     Active Substance: FISH OIL

REACTIONS (12)
  - Product physical issue [Unknown]
  - Application site warmth [Recovered/Resolved]
  - Product leakage [Unknown]
  - Application site pain [Recovered/Resolved]
  - Application site irritation [Recovered/Resolved]
  - Product adhesion issue [Unknown]
  - Application site erythema [Recovered/Resolved]
  - Application site paraesthesia [Recovered/Resolved]
  - Application site pruritus [Recovered/Resolved]
  - Application site discolouration [Recovered/Resolved]
  - Drug effect incomplete [Unknown]
  - Circumstance or information capable of leading to medication error [Unknown]

NARRATIVE: CASE EVENT DATE: 20160402
